FAERS Safety Report 24092246 (Version 1)
Quarter: 2024Q3

REPORT INFORMATION
  Report Type: Spontaneous
  Country: TR (occurrence: ES)
  Receive Date: 20240715
  Receipt Date: 20240715
  Transmission Date: 20241017
  Serious: Yes (Life-Threatening)
  Sender: PFIZER
  Company Number: ES-TAKEDA-2019TUS052117

PATIENT
  Age: 34 Year
  Sex: Male

DRUGS (8)
  1. BRENTUXIMAB VEDOTIN [Suspect]
     Active Substance: BRENTUXIMAB VEDOTIN
     Dosage: 4 CYCLES
  2. BRENTUXIMAB VEDOTIN [Suspect]
     Active Substance: BRENTUXIMAB VEDOTIN
     Dosage: PER HOUR
     Dates: start: 201801, end: 201801
  3. CYTARABINE [Concomitant]
     Active Substance: CYTARABINE
     Indication: Hodgkin^s disease
     Dosage: 4 CYCLES
     Route: 065
  4. METHYLPREDNISOLONE [Concomitant]
     Active Substance: METHYLPREDNISOLONE
     Indication: Hodgkin^s disease
     Dosage: 4 CYCLES
     Route: 065
  5. CISPLATIN [Concomitant]
     Active Substance: CISPLATIN
     Indication: Hodgkin^s disease
     Dosage: 4 CYCLES
  6. ETOPOSIDE [Concomitant]
     Active Substance: ETOPOSIDE
     Indication: Hodgkin^s disease
     Dosage: 4 CYCLES
  7. MELPHALAN [Concomitant]
     Active Substance: MELPHALAN
     Indication: Hodgkin^s disease
  8. CARMUSTINE [Concomitant]
     Active Substance: CARMUSTINE
     Indication: Hodgkin^s disease

REACTIONS (1)
  - Anaphylactic shock [Recovered/Resolved]

NARRATIVE: CASE EVENT DATE: 20180101
